FAERS Safety Report 19272443 (Version 2)
Quarter: 2021Q2

REPORT INFORMATION
  Report Type: Spontaneous
  Country: US (occurrence: US)
  Receive Date: 20210519
  Receipt Date: 20210625
  Transmission Date: 20210717
  Serious: Yes (Hospitalization)
  Sender: FDA-Public Use
  Company Number: US-GLOBAL BLOOD THERAPEUTICS INC-US-GBT-21-01524

PATIENT
  Sex: Male

DRUGS (1)
  1. OXBRYTA [Suspect]
     Active Substance: VOXELOTOR
     Indication: PRODUCT USED FOR UNKNOWN INDICATION
     Route: 048
     Dates: end: 202105

REACTIONS (6)
  - Liver disorder [Unknown]
  - Weight decreased [Unknown]
  - Therapy cessation [Unknown]
  - Sickle cell anaemia with crisis [Unknown]
  - Renal disorder [Unknown]
  - Cardiac disorder [Unknown]
